FAERS Safety Report 15119629 (Version 2)
Quarter: 2018Q3

REPORT INFORMATION
  Report Type: Spontaneous
  Country: JP (occurrence: JP)
  Receive Date: 20180709
  Receipt Date: 20180806
  Transmission Date: 20181010
  Serious: Yes (Death, Hospitalization, Other)
  Sender: FDA-Public Use
  Company Number: JP-ELI_LILLY_AND_COMPANY-JP201807003238

PATIENT
  Age: 66 Year

DRUGS (3)
  1. ERBITUX [Suspect]
     Active Substance: CETUXIMAB
     Indication: GINGIVAL CANCER
     Dosage: 500 MG, UNKNOWN
     Route: 041
     Dates: start: 20161207, end: 20161207
  2. PACLITAXEL. [Concomitant]
     Active Substance: PACLITAXEL
     Indication: GINGIVAL CANCER
     Dosage: 100 MG, UNKNOWN
     Route: 065
     Dates: start: 20161207, end: 20170315
  3. ERBITUX [Suspect]
     Active Substance: CETUXIMAB
     Dosage: 300 MG, UNKNOWN
     Route: 041
     Dates: end: 20170315

REACTIONS (5)
  - Interstitial lung disease [Not Recovered/Not Resolved]
  - Malignant neoplasm progression [Fatal]
  - Respiratory failure [Not Recovered/Not Resolved]
  - Aspiration [Not Recovered/Not Resolved]
  - Tracheal stenosis [Not Recovered/Not Resolved]

NARRATIVE: CASE EVENT DATE: 201706
